FAERS Safety Report 24726145 (Version 1)
Quarter: 2024Q4

REPORT INFORMATION
  Report Type: Spontaneous
  Country: US (occurrence: US)
  Receive Date: 20241212
  Receipt Date: 20241212
  Transmission Date: 20250115
  Serious: No
  Sender: BAYER HEALTHCARE LLC
  Company Number: US-BAYER-2024A176035

PATIENT
  Sex: Female

DRUGS (1)
  1. MIRALAX [Suspect]
     Active Substance: POLYETHYLENE GLYCOL 3350
     Indication: Colonoscopy
     Dosage: :I NEED TO MIX 238G OF MIRALAX IN 64OZ OF WATER AND DRINK 8 OZ OF THE MIX EVERY 15-20 MINUTES
     Route: 048
     Dates: start: 20241211, end: 20241212

REACTIONS (1)
  - Product prescribing issue [Unknown]
